FAERS Safety Report 23083618 (Version 1)
Quarter: 2023Q4

REPORT INFORMATION
  Report Type: Spontaneous
  Country: US (occurrence: None)
  Receive Date: 20231018
  Receipt Date: 20231018
  Transmission Date: 20240110
  Serious: Yes (Other)
  Sender: FDA-Public Use
  Company Number: None

PATIENT
  Age: 51 Year
  Sex: Female

DRUGS (4)
  1. ENTECAVIR [Suspect]
     Active Substance: ENTECAVIR
     Indication: Hepatitis B
     Dosage: FREQUENCY : DAILY;?
     Route: 048
     Dates: start: 20230726
  2. TRETINOIN CREAM [Concomitant]
  3. CLINDAMYCIN GEL [Concomitant]
  4. TRIAMCINOLONE CREAM [Concomitant]

REACTIONS (3)
  - Skin warm [None]
  - Rash [None]
  - Acne [None]

NARRATIVE: CASE EVENT DATE: 20230730
